FAERS Safety Report 25267318 (Version 4)
Quarter: 2025Q2

REPORT INFORMATION
  Report Type: Spontaneous
  Country: US (occurrence: US)
  Receive Date: 20250505
  Receipt Date: 20250620
  Transmission Date: 20250716
  Serious: No
  Sender: BIOVITRUM
  Company Number: US-BIOVITRUM-2025-US-006159

PATIENT
  Age: 59 Year
  Sex: Male

DRUGS (2)
  1. VONJO [Suspect]
     Active Substance: PACRITINIB
     Indication: Polycythaemia
     Route: 048
  2. VONJO [Suspect]
     Active Substance: PACRITINIB
     Indication: Polycythaemia vera
     Route: 048
     Dates: start: 20250502

REACTIONS (9)
  - Fatigue [Not Recovered/Not Resolved]
  - Platelet count decreased [Not Recovered/Not Resolved]
  - Insomnia [Unknown]
  - Hypoaesthesia [Unknown]
  - Intentional product misuse [Not Recovered/Not Resolved]
  - Cellulitis [Unknown]
  - Product dose omission issue [Unknown]
  - Electrocardiogram abnormal [Not Recovered/Not Resolved]
  - Laboratory test abnormal [Unknown]
